FAERS Safety Report 5924749-4 (Version None)
Quarter: 2008Q4

REPORT INFORMATION
  Report Type: 
  Country: None (occurrence: None)
  Receive Date: 20081017
  Receipt Date: 20081002
  Transmission Date: 20090506
  Serious: Yes (Other)
  Sender: FDA-Public Use
  Company Number: 2008US002655

PATIENT
  Age: 79 Year
  Sex: Female
  Weight: 78.5 kg

DRUGS (12)
  1. LEXISCAN [Suspect]
     Indication: SCAN MYOCARDIAL PERFUSION
     Dosage: 0.04 MG/ML, TOTAL DOSE, IV NOS
     Route: 042
     Dates: start: 20080711, end: 20080711
  2. ACIPHEX [Concomitant]
  3. ASPIRIN (CITRIC ACID) [Concomitant]
  4. BONIVA [Concomitant]
  5. CALCIUM (ASCORBIC ACID) [Concomitant]
  6. COZAAR [Concomitant]
  7. HYDROCHLORIZIDE [Concomitant]
  8. NORVASC [Concomitant]
  9. PREDNISOLONE ACETATE [Concomitant]
  10. ASCORBIC ACID [Concomitant]
  11. VITAMIN E (TOCOPHERYL ACID SUCCINATE) [Concomitant]
  12. ZONEGRAN [Concomitant]

REACTIONS (5)
  - DYSARTHRIA [None]
  - FACIAL PALSY [None]
  - HEADACHE [None]
  - INCOHERENT [None]
  - VISION BLURRED [None]
